FAERS Safety Report 9950788 (Version 1)
Quarter: 2014Q1

REPORT INFORMATION
  Report Type: Report from Study
  Country: US (occurrence: US)
  Receive Date: 20140304
  Receipt Date: 20140304
  Transmission Date: 20141002
  Serious: No
  Sender: FDA-Public Use
  Company Number: US-ABBVIE-13P-163-1068618-00

PATIENT
  Age: 58 Year
  Sex: Female
  Weight: 128.94 kg

DRUGS (1)
  1. HUMIRA [Suspect]
     Indication: PSORIATIC ARTHROPATHY
     Route: 058
     Dates: start: 201207, end: 201301

REACTIONS (2)
  - Injection site rash [Recovered/Resolved]
  - Injection site urticaria [Recovered/Resolved]
